FAERS Safety Report 6764634-1 (Version None)
Quarter: 2010Q2

REPORT INFORMATION
  Report Type: 
  Country: None (occurrence: None)
  Receive Date: 20100610
  Receipt Date: 20100607
  Transmission Date: 20101027
  Serious: Yes (Other)
  Sender: FDA-Public Use
  Company Number: GXKR2010DE05314

PATIENT
  Sex: Male

DRUGS (2)
  1. TILIDIN RETARD 1A PHARMA (NGX) [Interacting]
     Indication: PAIN
     Dosage: 300 MG, QD
     Route: 048
  2. VENLAFAXINE HCL [Suspect]
     Indication: DEPRESSION
     Dosage: 150 MG, QD
     Route: 048

REACTIONS (3)
  - DRUG INTERACTION [None]
  - PAIN [None]
  - WITHDRAWAL SYNDROME [None]
